FAERS Safety Report 5729450-8 (Version None)
Quarter: 2008Q2

REPORT INFORMATION
  Report Type: 
  Country: None (occurrence: None)
  Receive Date: 20080506
  Receipt Date: 20080306
  Transmission Date: 20081010
  Serious: Yes (Hospitalization)
  Sender: FDA-Public Use
  Company Number: TR-ELI_LILLY_AND_COMPANY-TR200803001541

PATIENT
  Age: 27 Year
  Sex: Female
  Weight: 125 kg

DRUGS (3)
  1. HUMULIN R [Suspect]
     Indication: GESTATIONAL DIABETES
     Dosage: 12 IU, 2/D
  2. HUMULIN R [Suspect]
     Dosage: 14 IU, EACH EVENING
  3. HUMULIN N [Suspect]
     Indication: GESTATIONAL DIABETES
     Dosage: 4 IU, EACH EVENING

REACTIONS (3)
  - DRUG EXPOSURE DURING PREGNANCY [None]
  - INFLAMMATION [None]
  - PREMATURE LABOUR [None]
